FAERS Safety Report 13349253 (Version 1)
Quarter: 2017Q1

REPORT INFORMATION
  Report Type: Spontaneous
  Country: US (occurrence: US)
  Receive Date: 20170320
  Receipt Date: 20170320
  Transmission Date: 20170428
  Serious: No
  Sender: FDA-Public Use
  Company Number: US-TEVA-643240USA

PATIENT
  Sex: Female

DRUGS (1)
  1. IRBESARTAN AND HYDROCHLOROTHIAZIDE [Suspect]
     Active Substance: HYDROCHLOROTHIAZIDE\IRBESARTAN
     Dosage: 150MG/12.5MG
     Route: 065

REACTIONS (5)
  - Drug ineffective [Unknown]
  - Dysuria [Unknown]
  - Eye oedema [Unknown]
  - Blood pressure increased [Unknown]
  - Product quality issue [Unknown]
